FAERS Safety Report 24235058 (Version 2)
Quarter: 2024Q4

REPORT INFORMATION
  Report Type: Spontaneous
  Country: GB (occurrence: GB)
  Receive Date: 20240821
  Receipt Date: 20241223
  Transmission Date: 20250115
  Serious: Yes (Other)
  Sender: SAMSUNG BIOEPIS
  Company Number: GB-CELLTRION INC.-2021GB018467

PATIENT
  Age: 57 Year
  Sex: Female
  Weight: 61 kg

DRUGS (2)
  1. INFLIXIMAB [Suspect]
     Active Substance: INFLIXIMAB
     Indication: Seronegative arthritis
     Dosage: 200 MG;
     Route: 042
     Dates: start: 20211201, end: 20211201
  2. REMICADE [Suspect]
     Active Substance: INFLIXIMAB
     Indication: Seronegative arthritis
     Dosage: UNK;
     Route: 065

REACTIONS (3)
  - Dyspnoea [Recovered/Resolved]
  - Product use in unapproved indication [Unknown]
  - Off label use [Unknown]

NARRATIVE: CASE EVENT DATE: 20211201
